FAERS Safety Report 19371155 (Version 3)
Quarter: 2021Q4

REPORT INFORMATION
  Report Type: Report from Study
  Country: KR (occurrence: KR)
  Receive Date: 20210604
  Receipt Date: 20211112
  Transmission Date: 20220303
  Serious: Yes (Other)
  Sender: FDA-Public Use
  Company Number: KR-KYOWAKIRIN-2021AKK009402

PATIENT
  Age: 57 Year
  Sex: Male

DRUGS (23)
  1. FILGRASTIM [Suspect]
     Active Substance: FILGRASTIM
     Indication: Product used for unknown indication
     Dosage: 300 UNK
     Route: 065
     Dates: start: 20081226, end: 20081226
  2. PEMETREXED [Concomitant]
     Active Substance: PEMETREXED
     Indication: Product used for unknown indication
     Dosage: 698 MILLIGRAM
     Dates: start: 20081216, end: 20081216
  3. PEMETREXED [Concomitant]
     Active Substance: PEMETREXED
     Dosage: 698 MILLIGRAM
     Dates: start: 20090108, end: 20090108
  4. PEMETREXED [Concomitant]
     Active Substance: PEMETREXED
     Dosage: 698 MILLIGRAM
     Dates: start: 20090129, end: 20090129
  5. PEMETREXED [Concomitant]
     Active Substance: PEMETREXED
     Dosage: 698 MILLIGRAM
     Dates: start: 20090218, end: 20090218
  6. PEMETREXED [Concomitant]
     Active Substance: PEMETREXED
     Dosage: 698 MILLIGRAM
     Dates: start: 20090313, end: 20090313
  7. PEMETREXED [Concomitant]
     Active Substance: PEMETREXED
     Dosage: 930 MILLIGRAM
     Dates: start: 20081216, end: 20081216
  8. PEMETREXED [Concomitant]
     Active Substance: PEMETREXED
     Dosage: 930 MILLIGRAM
     Dates: start: 20090108, end: 20090108
  9. PEMETREXED [Concomitant]
     Active Substance: PEMETREXED
     Dosage: 930 MILLIGRAM
     Dates: start: 20090129, end: 20090129
  10. PEMETREXED [Concomitant]
     Active Substance: PEMETREXED
     Dosage: 930 MILLIGRAM
     Dates: start: 20090218, end: 20090218
  11. PEMETREXED [Concomitant]
     Active Substance: PEMETREXED
     Dosage: 930 MILLIGRAM
     Dates: start: 20090313, end: 20090313
  12. PEMETREXED [Concomitant]
     Active Substance: PEMETREXED
     Dosage: 970 MILLIGRAM
     Dates: start: 20081216, end: 20081216
  13. PEMETREXED [Concomitant]
     Active Substance: PEMETREXED
     Dosage: 970 MILLIGRAM
     Dates: start: 20090108, end: 20090108
  14. PEMETREXED [Concomitant]
     Active Substance: PEMETREXED
     Dosage: 970 MILLIGRAM
     Dates: start: 20090129, end: 20090129
  15. PEMETREXED [Concomitant]
     Active Substance: PEMETREXED
     Dosage: 970 MILLIGRAM
     Dates: start: 20090218, end: 20090218
  16. PEMETREXED [Concomitant]
     Active Substance: PEMETREXED
     Dosage: 970 MILLIGRAM
     Dates: start: 20090313, end: 20090313
  17. CYANOCOBALAMIN [Concomitant]
     Active Substance: CYANOCOBALAMIN
     Indication: Product used for unknown indication
     Dosage: 1 UNK
     Dates: start: 20090129
  18. DEXAMETHASONE [Concomitant]
     Active Substance: DEXAMETHASONE
     Indication: Product used for unknown indication
     Dosage: 4 MILLIGRAM
     Dates: start: 20081215, end: 20081217
  19. DEXAMETHASONE [Concomitant]
     Active Substance: DEXAMETHASONE
     Dosage: 4 MILLIGRAM
     Dates: start: 20090107, end: 20090109
  20. DEXAMETHASONE [Concomitant]
     Active Substance: DEXAMETHASONE
     Dosage: 4 MILLIGRAM
     Dates: start: 20090128, end: 20090130
  21. DEXAMETHASONE [Concomitant]
     Active Substance: DEXAMETHASONE
     Dosage: 4 MILLIGRAM
     Dates: start: 20090217, end: 20090219
  22. DEXAMETHASONE [Concomitant]
     Active Substance: DEXAMETHASONE
     Dosage: 4 MILLIGRAM
     Dates: start: 20090312, end: 20090314
  23. FOLIC ACID [Concomitant]
     Active Substance: FOLIC ACID
     Indication: Product used for unknown indication
     Dosage: 1 MILLIGRAM

REACTIONS (2)
  - Neutropenia [Recovered/Resolved]
  - Neutropenia [Recovered/Resolved]

NARRATIVE: CASE EVENT DATE: 20081226
